FAERS Safety Report 10736245 (Version 1)
Quarter: 2015Q1

REPORT INFORMATION
  Report Type: Spontaneous
  Country: US (occurrence: None)
  Receive Date: 20150122
  Receipt Date: 20150122
  Transmission Date: 20150721
  Serious: Yes (Death, Hospitalization)
  Sender: FDA-Public Use
  Company Number: None

PATIENT
  Age: 86 Year
  Sex: Female
  Weight: 64.58 kg

DRUGS (2)
  1. GEMCITABINE HYDROCHLORIDE. [Suspect]
     Active Substance: GEMCITABINE HYDROCHLORIDE
     Dates: end: 20150107
  2. CISPLATIN. [Suspect]
     Active Substance: CISPLATIN
     Dates: end: 20150107

REACTIONS (2)
  - Sudden death [None]
  - Dyspnoea [None]

NARRATIVE: CASE EVENT DATE: 20150110
